FAERS Safety Report 4384749-5 (Version None)
Quarter: 2004Q2

REPORT INFORMATION
  Report Type: 
  Country: None (occurrence: None)
  Receive Date: 20040625
  Receipt Date: 20040618
  Transmission Date: 20050107
  Serious: Yes (Hospitalization, Other)
  Sender: FDA-Public Use
  Company Number: FR-BRISTOL-MYERS SQUIBB COMPANY-12618450

PATIENT
  Age: 29 Year
  Sex: Female

DRUGS (5)
  1. SUSTIVA [Suspect]
     Indication: HIV INFECTION
     Route: 048
     Dates: start: 20031215
  2. IMPLANON [Interacting]
     Indication: CONTRACEPTION
     Route: 058
  3. VIDEX [Concomitant]
     Dates: start: 20031215
  4. EPIVIR [Concomitant]
     Dates: start: 20031215
  5. BACTRIM [Concomitant]
     Dates: start: 20031124

REACTIONS (4)
  - ABORTION INDUCED [None]
  - DRUG INTERACTION [None]
  - PREGNANCY [None]
  - THERAPEUTIC RESPONSE DECREASED [None]
